FAERS Safety Report 19258597 (Version 7)
Quarter: 2024Q1

REPORT INFORMATION
  Report Type: Spontaneous
  Country: US (occurrence: US)
  Receive Date: 20210514
  Receipt Date: 20240201
  Transmission Date: 20240410
  Serious: Yes (Other)
  Sender: FDA-Public Use
  Company Number: US-PFIZER INC-2021494267

PATIENT
  Age: 68 Year
  Sex: Female

DRUGS (1)
  1. ESTRING [Suspect]
     Active Substance: ESTRADIOL
     Indication: Vulvovaginal dryness
     Dosage: UNK
     Route: 067

REACTIONS (8)
  - Suicidal ideation [Unknown]
  - Breast cancer [Unknown]
  - Near death experience [Unknown]
  - Malaise [Unknown]
  - Asthenia [Unknown]
  - Depressed mood [Unknown]
  - Dizziness [Unknown]
  - Stress [Unknown]

NARRATIVE: CASE EVENT DATE: 20210202
